FAERS Safety Report 10160860 (Version 1)
Quarter: 2014Q2

REPORT INFORMATION
  Report Type: Spontaneous
  Country: US (occurrence: None)
  Receive Date: 20140507
  Receipt Date: 20140507
  Transmission Date: 20141212
  Serious: Yes (Hospitalization)
  Sender: FDA-Public Use
  Company Number: None

PATIENT
  Age: 62 Year
  Sex: Female

DRUGS (1)
  1. EXJADE 500 MG [Suspect]
     Indication: IRON OVERLOAD
     Route: 048
     Dates: start: 20140206, end: 20140506

REACTIONS (4)
  - Diarrhoea [None]
  - Vomiting [None]
  - Weight decreased [None]
  - Gastric disorder [None]
